FAERS Safety Report 14184033 (Version 2)
Quarter: 2019Q2

REPORT INFORMATION
  Report Type: Report from Study
  Country: GB (occurrence: GB)
  Receive Date: 20171113
  Receipt Date: 20190624
  Transmission Date: 20190711
  Serious: Yes (Hospitalization)
  Sender: FDA-Public Use
  Company Number: GB-ARIAD PHARMACEUTICALS, INC-2017GB009231

PATIENT
  Age: 62 Year
  Sex: Female

DRUGS (12)
  1. RIVAROXABAN [Concomitant]
     Active Substance: RIVAROXABAN
     Indication: ATRIAL FLUTTER
     Dosage: UNK
     Route: 048
     Dates: start: 20161130
  2. PONATINIB [Suspect]
     Active Substance: PONATINIB
     Dosage: 15 MG, QD
     Route: 048
     Dates: start: 20161201, end: 20171105
  3. PONATINIB [Suspect]
     Active Substance: PONATINIB
     Dosage: 15 MG, QD
     Route: 048
     Dates: start: 20160902, end: 20161126
  4. CETIRIZINE HYDROCHLORIDE. [Concomitant]
     Active Substance: CETIRIZINE HYDROCHLORIDE
     Indication: URTICARIA
     Dosage: UNK
     Route: 048
     Dates: start: 20160506
  5. FLUCLOXACILLIN [Concomitant]
     Active Substance: FLUCLOXACILLIN
     Indication: CELLULITIS
     Dosage: UNK
     Route: 048
     Dates: start: 20161018
  6. BISOPROLOL [Concomitant]
     Active Substance: BISOPROLOL
     Indication: ATRIAL FLUTTER
     Dosage: UNK
     Route: 048
     Dates: start: 20161130
  7. AMIODARONE [Concomitant]
     Active Substance: AMIODARONE
     Indication: ATRIAL FLUTTER
     Dosage: UNK
     Route: 048
     Dates: start: 20161215
  8. LEVOFLOXACIN. [Concomitant]
     Active Substance: LEVOFLOXACIN
     Indication: PYREXIA
     Dosage: UNK
     Route: 048
     Dates: start: 20171031, end: 20171104
  9. GENTAMICIN. [Concomitant]
     Active Substance: GENTAMICIN
     Indication: PYREXIA
     Dosage: UNK
     Route: 042
     Dates: start: 20171017, end: 20171030
  10. PARACETAMOL [Concomitant]
     Active Substance: ACETAMINOPHEN
     Indication: ARTHRALGIA
     Dosage: UNK
     Route: 048
     Dates: start: 20160508
  11. MEROPENEM. [Concomitant]
     Active Substance: MEROPENEM
     Indication: PYREXIA
     Dosage: UNK
     Route: 042
     Dates: start: 20171017, end: 20171030
  12. PONATINIB [Suspect]
     Active Substance: PONATINIB
     Indication: CHRONIC MYELOID LEUKAEMIA
     Dosage: 15 MG, QD
     Route: 048
     Dates: start: 20160503, end: 20160823

REACTIONS (1)
  - Rash erythematous [Recovered/Resolved]

NARRATIVE: CASE EVENT DATE: 20171104
